FAERS Safety Report 7206256-4 (Version None)
Quarter: 2011Q1

REPORT INFORMATION
  Report Type: 
  Country: None (occurrence: None)
  Receive Date: 20110103
  Receipt Date: 20101221
  Transmission Date: 20110831
  Serious: Yes (Other)
  Sender: FDA-Public Use
  Company Number: PHHY2010US69814

PATIENT
  Sex: Female

DRUGS (1)
  1. RECLAST [Suspect]
     Indication: OSTEOPOROSIS
     Dosage: 5 MG, ONCE
     Dates: start: 20100831

REACTIONS (8)
  - MUSCULOSKELETAL PAIN [None]
  - PYREXIA [None]
  - HYPERHIDROSIS [None]
  - PAIN IN EXTREMITY [None]
  - MUSCULOSKELETAL STIFFNESS [None]
  - BEDRIDDEN [None]
  - MUSCLE SPASMS [None]
  - VOMITING [None]
